FAERS Safety Report 12136364 (Version 2)
Quarter: 2016Q1

REPORT INFORMATION
  Report Type: Spontaneous
  Country: US (occurrence: US)
  Receive Date: 20160302
  Receipt Date: 20160310
  Transmission Date: 20160526
  Serious: No
  Sender: FDA-Public Use
  Company Number: US-PFIZER INC-2016105535

PATIENT
  Age: 65 Year
  Sex: Female
  Weight: 68 kg

DRUGS (4)
  1. SUTENT [Suspect]
     Active Substance: SUNITINIB MALATE
     Indication: RENAL CELL CARCINOMA
     Dosage: 50 MG, CYCLIC (2 WEEKS ON/1 WEEK OFF)
     Dates: start: 20160129, end: 20160219
  2. LIPITOR [Concomitant]
     Active Substance: ATORVASTATIN CALCIUM
     Dosage: UNK
  3. AMLODIPINE [Concomitant]
     Active Substance: AMLODIPINE BESYLATE
     Dosage: UNK
  4. FLONASE [Concomitant]
     Active Substance: FLUTICASONE PROPIONATE
     Dosage: UNK

REACTIONS (16)
  - Nausea [Unknown]
  - Asthenia [Unknown]
  - Parosmia [Unknown]
  - Dyspnoea [Unknown]
  - Chromaturia [Unknown]
  - Constipation [Unknown]
  - Disease progression [Unknown]
  - Decreased appetite [Unknown]
  - Fall [Unknown]
  - Weight decreased [Unknown]
  - Depression [Unknown]
  - Fatigue [Unknown]
  - Vomiting [Unknown]
  - Renal cell carcinoma [Unknown]
  - Face injury [Unknown]
  - Anxiety [Unknown]

NARRATIVE: CASE EVENT DATE: 201602
